FAERS Safety Report 14483030 (Version 2)
Quarter: 2018Q1

REPORT INFORMATION
  Report Type: Spontaneous
  Country: US (occurrence: US)
  Receive Date: 20180203
  Receipt Date: 20180216
  Transmission Date: 20180509
  Serious: No
  Sender: FDA-Public Use
  Company Number: US-JNJFOC-20180109582

PATIENT
  Age: 69 Year
  Sex: Female
  Weight: 74.84 kg

DRUGS (5)
  1. MAGNESIUM [Concomitant]
     Active Substance: MAGNESIUM
     Indication: ROUTINE HEALTH MAINTENANCE
     Route: 065
  2. TYLENOL 8HR [Suspect]
     Active Substance: ACETAMINOPHEN
     Route: 048
  3. TYLENOL EXTRA STRENGTH [Suspect]
     Active Substance: ACETAMINOPHEN
     Indication: PAIN
     Route: 048
     Dates: start: 20180107, end: 20180107
  4. CALCIUM [Concomitant]
     Active Substance: CALCIUM
     Indication: ROUTINE HEALTH MAINTENANCE
     Route: 065
  5. TYLENOL 8HR [Suspect]
     Active Substance: ACETAMINOPHEN
     Indication: PAIN
     Route: 048
     Dates: start: 20180107, end: 20180107

REACTIONS (2)
  - Product use in unapproved indication [Unknown]
  - Drug administration error [Unknown]

NARRATIVE: CASE EVENT DATE: 20180107
